FAERS Safety Report 9068953 (Version 3)
Quarter: 2013Q1

REPORT INFORMATION
  Report Type: Report from Study
  Country: US (occurrence: US)
  Receive Date: 20130215
  Receipt Date: 20130328
  Transmission Date: 20140127
  Serious: Yes (Hospitalization)
  Sender: FDA-Public Use
  Company Number: US-EISAI INC-E7272-00140-CLI-US

PATIENT
  Age: 86 None
  Sex: Female

DRUGS (5)
  1. ONTAK [Suspect]
     Indication: MALIGNANT MELANOMA
     Route: 041
     Dates: start: 20121218, end: 20121221
  2. FLOVENT [Concomitant]
     Indication: ASTHMA
     Route: 055
     Dates: start: 2009
  3. CITALOPRAM [Concomitant]
     Indication: DEPRESSION
     Route: 048
     Dates: start: 2012
  4. OXYCODONE [Concomitant]
     Indication: BACK PAIN
     Route: 048
     Dates: start: 20121211
  5. OXYCONTIN [Concomitant]
     Indication: BACK PAIN
     Route: 048
     Dates: start: 20121211

REACTIONS (1)
  - Confusional state [Recovered/Resolved]
